FAERS Safety Report 14961605 (Version 1)
Quarter: 2018Q2

REPORT INFORMATION
  Report Type: Spontaneous
  Country: JP (occurrence: JP)
  Receive Date: 20180601
  Receipt Date: 20180601
  Transmission Date: 20180711
  Serious: Yes (Other)
  Sender: FDA-Public Use
  Company Number: JP-AMGEN-JPNSP2018074413

PATIENT
  Age: 62 Year
  Sex: Female

DRUGS (2)
  1. RANMARK [Suspect]
     Active Substance: DENOSUMAB
     Indication: METASTASES TO BONE
     Dosage: 120 MG, ONCE EVERY 4 WK
     Route: 058
     Dates: start: 20180109
  2. RANMARK [Suspect]
     Active Substance: DENOSUMAB
     Indication: BONE LESION

REACTIONS (1)
  - Osteonecrosis of jaw [Unknown]

NARRATIVE: CASE EVENT DATE: 20180515
